FAERS Safety Report 6656857-7 (Version None)
Quarter: 2010Q1

REPORT INFORMATION
  Report Type: 
  Country: None (occurrence: None)
  Receive Date: 20100329
  Receipt Date: 20100329
  Transmission Date: 20100710
  Serious: Yes (Disabling, Other)
  Sender: FDA-Public Use
  Company Number: None

PATIENT
  Age: 4 Year
  Sex: Male
  Weight: 19.9583 kg

DRUGS (1)
  1. LORATADINE [Suspect]
     Indication: EPISTAXIS
     Dosage: 5MG DAILY PO
     Route: 048

REACTIONS (8)
  - AMNESIA [None]
  - AUTISM [None]
  - DISTURBANCE IN ATTENTION [None]
  - HEADACHE [None]
  - PHONOLOGICAL DISORDER [None]
  - PSYCHOMOTOR HYPERACTIVITY [None]
  - SPEECH DISORDER [None]
  - UNEVALUABLE EVENT [None]
